FAERS Safety Report 6022454-X (Version None)
Quarter: 2008Q4

REPORT INFORMATION
  Report Type: 
  Country: None (occurrence: None)
  Receive Date: 20081221
  Receipt Date: 20081221
  Transmission Date: 20090506
  Serious: Yes (Life-Threatening, Hospitalization)
  Sender: FDA-Public Use
  Company Number: None

PATIENT
  Age: 33 Year
  Sex: Female
  Weight: 56.6996 kg

DRUGS (2)
  1. MAGNESIUM CITRATE  (LEMON FLAVOR) [Suspect]
     Indication: COLONOSCOPY
     Dosage: 10 FL OZ -296 ML- 3 PO
     Route: 048
     Dates: start: 20081016, end: 20081016
  2. MAGNESIUM CITRATE [Suspect]

REACTIONS (8)
  - COMA [None]
  - HEADACHE [None]
  - HYPERVOLAEMIA [None]
  - HYPONATRAEMIA [None]
  - MENTAL DISORDER [None]
  - OEDEMA PERIPHERAL [None]
  - PANIC ATTACK [None]
  - VOMITING [None]
